FAERS Safety Report 16694545 (Version 2)
Quarter: 2019Q3

REPORT INFORMATION
  Report Type: Spontaneous
  Country: US (occurrence: US)
  Receive Date: 20190812
  Receipt Date: 20190815
  Transmission Date: 20191004
  Serious: Yes (Other)
  Sender: FDA-Public Use
  Company Number: US-PFIZER INC-2019345235

PATIENT
  Age: 55 Year
  Sex: Female
  Weight: 85.28 kg

DRUGS (1)
  1. RELPAX [Suspect]
     Active Substance: ELETRIPTAN HYDROBROMIDE
     Indication: MIGRAINE
     Dosage: 80 MG, AS NEEDED (40MG TABLET, 2 TABLETS A DAY AS NEEDED)
     Route: 048
     Dates: start: 2015

REACTIONS (1)
  - Malignant melanoma [Unknown]
